FAERS Safety Report 8461487-0 (Version None)
Quarter: 2012Q2

REPORT INFORMATION
  Report Type: 
  Country: None (occurrence: None)
  Receive Date: 20120625
  Receipt Date: 20120615
  Transmission Date: 20120825
  Serious: Yes (Hospitalization, Other)
  Sender: FDA-Public Use
  Company Number: US-US-EMD SERONO, INC.-230526J10USA

PATIENT
  Sex: Male
  Weight: 68 kg

DRUGS (2)
  1. REBIF [Suspect]
     Indication: MULTIPLE SCLEROSIS
     Route: 058
     Dates: start: 20090602, end: 20100101
  2. REBIF [Suspect]
     Route: 058

REACTIONS (7)
  - DEHYDRATION [None]
  - BLADDER DILATATION [None]
  - PAIN [None]
  - URINARY TRACT DISORDER [None]
  - RENAL FAILURE ACUTE [None]
  - MOTOR DYSFUNCTION [None]
  - CATHETER SITE INFECTION [None]
